FAERS Safety Report 5643143-7 (Version None)
Quarter: 2008Q1

REPORT INFORMATION
  Report Type: 
  Country: None (occurrence: None)
  Receive Date: 20080228
  Receipt Date: 20080221
  Transmission Date: 20080703
  Serious: Yes (Hospitalization)
  Sender: FDA-Public Use
  Company Number: US-BAXTER-2008BH000780

PATIENT
  Sex: Female

DRUGS (2)
  1. HEPARIN SODIUM [Suspect]
     Indication: PROPHYLAXIS
     Dosage: DOSE UNIT:UNKNOWN
     Route: 065
  2. HEPARIN SODIUM [Suspect]
     Dosage: DOSE UNIT:UNKNOWN
     Route: 065

REACTIONS (5)
  - ABDOMINAL PAIN UPPER [None]
  - BLOOD PRESSURE DECREASED [None]
  - CATHETER RELATED COMPLICATION [None]
  - HAEMORRHAGE [None]
  - PRESYNCOPE [None]
